FAERS Safety Report 20190460 (Version 2)
Quarter: 2022Q3

REPORT INFORMATION
  Report Type: Report from Study
  Country: CA (occurrence: CA)
  Receive Date: 20211215
  Receipt Date: 20220721
  Transmission Date: 20221027
  Serious: Yes (Death, Other)
  Sender: FDA-Public Use
  Company Number: CA-JNJFOC-20211219654

PATIENT
  Sex: Female

DRUGS (1)
  1. REMICADE [Suspect]
     Active Substance: INFLIXIMAB
     Indication: Crohn^s disease
     Dosage: ON HOLD
     Route: 042
     Dates: start: 20150928, end: 20211020

REACTIONS (3)
  - Lung adenocarcinoma [Fatal]
  - Spinal compression fracture [Unknown]
  - Off label use [Unknown]
